FAERS Safety Report 8511747-X (Version None)
Quarter: 2012Q2

REPORT INFORMATION
  Report Type: 
  Country: None (occurrence: None)
  Receive Date: 20120406
  Receipt Date: 20100427
  Transmission Date: 20120825
  Serious: Yes (Disabling)
  Sender: FDA-Public Use
  Company Number: PHHY2010US23511

PATIENT
  Age: 58 Year
  Sex: Female
  Weight: 97 kg

DRUGS (1)
  1. TASIGNA [Suspect]
     Indication: CHRONIC MYELOID LEUKAEMIA
     Dosage: 400 MG,BID,ORAL
     Route: 048
     Dates: start: 20080506

REACTIONS (2)
  - PRURITUS [None]
  - RASH GENERALISED [None]
